FAERS Safety Report 24073638 (Version 1)
Quarter: 2024Q3

REPORT INFORMATION
  Report Type: Spontaneous
  Country: US (occurrence: None)
  Receive Date: 20240710
  Receipt Date: 20240710
  Transmission Date: 20241017
  Serious: Yes (Disabling)
  Sender: Public
  Company Number: None

PATIENT
  Age: 75 Year
  Sex: Male
  Weight: 94.5 kg

DRUGS (1)
  1. CIPRO [Suspect]
     Active Substance: CIPROFLOXACIN HYDROCHLORIDE
     Indication: Urinary tract infection
     Dates: start: 20240602, end: 20240606

REACTIONS (4)
  - Quality of life decreased [None]
  - Thermal burn [None]
  - Hypersensitivity [None]
  - Nerve injury [None]

NARRATIVE: CASE EVENT DATE: 20240602
